FAERS Safety Report 9447817 (Version 2)
Quarter: 2014Q1

REPORT INFORMATION
  Report Type: Spontaneous
  Country: IT (occurrence: IT)
  Receive Date: 20130808
  Receipt Date: 20140121
  Transmission Date: 20141002
  Serious: Yes (Other)
  Sender: FDA-Public Use
  Company Number: IT-ACCORD-018864

PATIENT
  Age: 54 Year
  Sex: Male

DRUGS (4)
  1. GEMCITABINE/GEMCITABINE HYDROCHLORIDE [Suspect]
     Indication: PANCREATIC CARCINOMA
     Route: 040
     Dates: start: 20130117, end: 20130121
  2. RANIDIL [Concomitant]
     Route: 042
  3. SOLDESAM [Concomitant]
     Route: 042
  4. ONDANSETRON HIKAMA [Concomitant]
     Route: 042

REACTIONS (6)
  - Abdominal pain upper [Unknown]
  - Pain [Unknown]
  - Hyperglycaemia [Unknown]
  - Fatigue [Unknown]
  - Pyrexia [Unknown]
  - Astringent therapy [Unknown]
